FAERS Safety Report 12751781 (Version 1)
Quarter: 2016Q3

REPORT INFORMATION
  Report Type: Spontaneous
  Country: US (occurrence: US)
  Receive Date: 20160915
  Receipt Date: 20160915
  Transmission Date: 20161109
  Serious: Yes (Other)
  Sender: FDA-Public Use
  Company Number: US-ASTELLAS-2015US040773

PATIENT
  Age: 75 Year
  Sex: Male

DRUGS (1)
  1. XTANDI [Suspect]
     Active Substance: ENZALUTAMIDE
     Indication: PROSTATE CANCER
     Route: 065

REACTIONS (10)
  - Salivary gland enlargement [Unknown]
  - Toothache [Unknown]
  - Nausea [Not Recovered/Not Resolved]
  - Constipation [Recovering/Resolving]
  - Tooth abscess [Unknown]
  - International normalised ratio abnormal [Unknown]
  - Malignant neoplasm progression [Unknown]
  - Hallucination [Unknown]
  - Urinary tract infection [Unknown]
  - Hypersomnia [Unknown]

NARRATIVE: CASE EVENT DATE: 201510
